FAERS Safety Report 17511218 (Version 1)
Quarter: 2020Q1

REPORT INFORMATION
  Report Type: Spontaneous
  Country: DE (occurrence: DE)
  Receive Date: 20200306
  Receipt Date: 20200306
  Transmission Date: 20200409
  Serious: Yes (Other)
  Sender: FDA-Public Use
  Company Number: DE-PFIZER INC-2020099071

PATIENT
  Age: 29 Year
  Sex: Female
  Weight: 75 kg

DRUGS (1)
  1. CYTOTEC [Suspect]
     Active Substance: MISOPROSTOL
     Indication: LABOUR INDUCTION
     Dosage: FROM 0.5 TO 2MG IN GEL FORM
     Route: 054
     Dates: start: 20191115, end: 20191121

REACTIONS (6)
  - Product use in unapproved indication [Unknown]
  - Off label use [Unknown]
  - Uterine rupture [Unknown]
  - Bradycardia foetal [Unknown]
  - Foetal exposure during delivery [Unknown]
  - Product use issue [Unknown]

NARRATIVE: CASE EVENT DATE: 20191115
